FAERS Safety Report 7906319-1 (Version None)
Quarter: 2011Q4

REPORT INFORMATION
  Report Type: 
  Country: None (occurrence: None)
  Receive Date: 20111110
  Receipt Date: 20111031
  Transmission Date: 20120403
  Serious: Yes (Life-Threatening, Hospitalization, Other)
  Sender: FDA-Public Use
  Company Number: TR-PFIZER INC-2011269321

PATIENT
  Age: 19 Year
  Sex: Female

DRUGS (4)
  1. PYRAZINAMIDE [Suspect]
     Indication: TUBERCULOSIS
     Dosage: 1500 MG/DAY
  2. ISONIAZID [Suspect]
     Indication: TUBERCULOSIS
     Dosage: 300 MG/DAY
  3. RIFAMPICIN [Suspect]
     Indication: TUBERCULOSIS
     Dosage: 600 MG/DAY
  4. ETHAMBUTOL HYDROCHLORIDE [Suspect]
     Indication: TUBERCULOSIS
     Dosage: 1500 MG/DAY

REACTIONS (4)
  - ACUTE HEPATIC FAILURE [None]
  - HEART RATE INCREASED [None]
  - HEPATIC ENCEPHALOPATHY [None]
  - LOSS OF CONSCIOUSNESS [None]
